FAERS Safety Report 9112990 (Version 1)
Quarter: 2013Q1

REPORT INFORMATION
  Report Type: Spontaneous
  Country: US (occurrence: US)
  Receive Date: 20130211
  Receipt Date: 20130211
  Transmission Date: 20140127
  Serious: No
  Sender: FDA-Public Use
  Company Number: US-BAYER-2013-011188

PATIENT
  Age: 32 Year
  Sex: Female

DRUGS (3)
  1. AVELOX [Suspect]
     Indication: BRONCHITIS
     Dosage: 400 MG, QD
     Route: 048
     Dates: start: 20130123, end: 20130125
  2. SPIRIVA [Concomitant]
  3. TESLAC [Concomitant]

REACTIONS (1)
  - Rash [Recovered/Resolved]
